FAERS Safety Report 25305887 (Version 1)
Quarter: 2025Q2

REPORT INFORMATION
  Report Type: Spontaneous
  Country: CN (occurrence: CN)
  Receive Date: 20250513
  Receipt Date: 20250513
  Transmission Date: 20250716
  Serious: Yes (Hospitalization, Other)
  Sender: DAIICHI
  Company Number: CN-DSJP-DS-2025-139899-CN

PATIENT
  Age: 66 Year
  Sex: Male

DRUGS (1)
  1. EDOXABAN [Suspect]
     Active Substance: EDOXABAN
     Indication: Atrial fibrillation
     Dosage: 60 MG, QD
     Route: 048
     Dates: start: 20250213, end: 20250427

REACTIONS (2)
  - Gingival bleeding [Recovering/Resolving]
  - Tooth loss [Recovering/Resolving]

NARRATIVE: CASE EVENT DATE: 20250427
